FAERS Safety Report 8219769-3 (Version None)
Quarter: 2012Q1

REPORT INFORMATION
  Report Type: 
  Country: None (occurrence: None)
  Receive Date: 20120319
  Receipt Date: 20120314
  Transmission Date: 20120608
  Serious: No
  Sender: FDA-Public Use
  Company Number: US-PFIZER INC-2011165524

PATIENT
  Sex: Female

DRUGS (7)
  1. GEODON [Suspect]
     Indication: BIPOLAR DISORDER
     Dosage: UNK
     Dates: start: 20110429
  2. TOPAMAX [Suspect]
     Dosage: UNK
  3. CELEBREX [Suspect]
     Dosage: UNK
     Dates: start: 20110429
  4. GLUCOTROL [Suspect]
     Dosage: UNK
     Dates: start: 20110429
  5. NORVASC [Suspect]
     Dosage: UNK
     Dates: start: 20110429
  6. LIPITOR [Suspect]
     Dosage: UNK
     Dates: start: 20110429
  7. NEURONTIN [Suspect]
     Dosage: UNK
     Dates: start: 20110429

REACTIONS (1)
  - GASTROOESOPHAGEAL REFLUX DISEASE [None]
